FAERS Safety Report 18035204 (Version 2)
Quarter: 2023Q1

REPORT INFORMATION
  Report Type: Spontaneous
  Country: US (occurrence: US)
  Receive Date: 20200717
  Receipt Date: 20230201
  Transmission Date: 20230418
  Serious: Yes (Hospitalization, Other)
  Sender: FDA-Public Use
  Company Number: US-SUN PHARMACEUTICAL INDUSTRIES LTD-2020R1-253243

PATIENT
  Age: 16 Year
  Sex: Female

DRUGS (1)
  1. ACETAMINOPHEN [Suspect]
     Active Substance: ACETAMINOPHEN
     Indication: Product used for unknown indication
     Dosage: 51 G, 906 MG/KG
     Route: 065

REACTIONS (5)
  - Overdose [Unknown]
  - Haematemesis [Unknown]
  - Pancreatitis [Unknown]
  - Abdominal pain [Unknown]
  - Vomiting [Unknown]
